FAERS Safety Report 25885939 (Version 1)
Quarter: 2025Q4

REPORT INFORMATION
  Report Type: Spontaneous
  Country: US (occurrence: None)
  Receive Date: 20251004
  Receipt Date: 20251004
  Transmission Date: 20260117
  Serious: Yes (Other)
  Sender: FDA-CTU
  Company Number: None

PATIENT
  Age: 1 Year
  Sex: Male

DRUGS (1)
  1. HEMANGEOL [Suspect]
     Active Substance: PROPRANOLOL HYDROCHLORIDE
     Indication: Haemangioma
     Dosage: FREQUENCY : TWICE A DAY;?
     Route: 048
     Dates: start: 20240626, end: 20250915

REACTIONS (1)
  - Therapy cessation [None]

NARRATIVE: CASE EVENT DATE: 20250915
